FAERS Safety Report 5330396-8 (Version None)
Quarter: 2007Q2

REPORT INFORMATION
  Report Type: 
  Country: None (occurrence: None)
  Receive Date: 20070521
  Receipt Date: 20070515
  Transmission Date: 20071010
  Serious: Yes (Other)
  Sender: FDA-Public Use
  Company Number: US-ROXANE LABORATORIES, INC-2007-BP-06619RO

PATIENT
  Age: 59 Year
  Sex: Female

DRUGS (2)
  1. CYCLOPHOSPHAMIDE [Suspect]
     Indication: WEGENER'S GRANULOMATOSIS
  2. PREDNISONE TAB [Suspect]
     Indication: WEGENER'S GRANULOMATOSIS

REACTIONS (7)
  - ANAEMIA MACROCYTIC [None]
  - CHROMOSOME ABNORMALITY [None]
  - CHRONIC MYELOMONOCYTIC LEUKAEMIA [None]
  - CUSHINGOID [None]
  - PALLOR [None]
  - PLATELET COUNT DECREASED [None]
  - THROMBOCYTOPENIA [None]
